FAERS Safety Report 21322418 (Version 1)
Quarter: 2022Q3

REPORT INFORMATION
  Report Type: Spontaneous
  Country: US (occurrence: None)
  Receive Date: 20220910
  Receipt Date: 20220910
  Transmission Date: 20221027
  Serious: Yes (Death, Hospitalization)
  Sender: FDA-Public Use
  Company Number: None

PATIENT
  Sex: Male
  Weight: 58.9 kg

DRUGS (3)
  1. FLUOROURACIL [Suspect]
     Active Substance: FLUOROURACIL
     Dates: end: 20210325
  2. IRINOTECAN HYDROCHLORIDE [Suspect]
     Active Substance: IRINOTECAN HYDROCHLORIDE
     Dates: end: 20210323
  3. LEUCOVORIN CALCIUM [Suspect]
     Active Substance: LEUCOVORIN CALCIUM
     Dates: end: 20210323

REACTIONS (8)
  - Hyperhidrosis [None]
  - Feeling abnormal [None]
  - Pain [None]
  - Atrial fibrillation [None]
  - Lactic acidosis [None]
  - Urinary retention [None]
  - Metastases to liver [None]
  - Pancreatic mass [None]

NARRATIVE: CASE EVENT DATE: 20210404
